FAERS Safety Report 4379985-8 (Version None)
Quarter: 2004Q2

REPORT INFORMATION
  Report Type: 
  Country: None (occurrence: None)
  Receive Date: 20040614
  Receipt Date: 20040528
  Transmission Date: 20050107
  Serious: Yes (Other)
  Sender: FDA-Public Use
  Company Number: 2004IM000688

PATIENT
  Age: 36 Year
  Sex: Male

DRUGS (1)
  1. ADVAFERON (A643_INTERFERON ALFACON-1) [Suspect]
     Dosage: SUBCUTANEOUS
     Route: 058
     Dates: start: 20040309

REACTIONS (3)
  - LOSS OF CONSCIOUSNESS [None]
  - PARALYSIS [None]
  - SPEECH DISORDER [None]
